FAERS Safety Report 8340419-X (Version None)
Quarter: 2012Q2

REPORT INFORMATION
  Report Type: 
  Country: None (occurrence: None)
  Receive Date: 20120507
  Receipt Date: 20120507
  Transmission Date: 20120825
  Serious: Yes (Other)
  Sender: FDA-Public Use
  Company Number: None

PATIENT
  Age: 23 Year
  Sex: Male
  Weight: 63.502 kg

DRUGS (1)
  1. SEROQUEL [Suspect]
     Indication: BIPOLAR DISORDER
     Dosage: |DOSAGETEXT: 150MG||STRENGTH: 300 MG||FREQ: AN AND NOON||ROUTE: ORAL|
     Route: 048
     Dates: start: 20010101, end: 20120506

REACTIONS (1)
  - SLEEP ATTACKS [None]
